FAERS Safety Report 23820979 (Version 1)
Quarter: 2024Q2

REPORT INFORMATION
  Report Type: Spontaneous
  Country: US (occurrence: US)
  Receive Date: 20240506
  Receipt Date: 20240506
  Transmission Date: 20240716
  Serious: No
  Sender: FDA-Public Use
  Company Number: US-BAYER-2024A059247

PATIENT
  Sex: Male
  Weight: 0.96 kg

DRUGS (1)
  1. CIPROFLOXACIN [Suspect]
     Active Substance: CIPROFLOXACIN
     Indication: Flavobacterium infection
     Dosage: UNK
     Route: 048

REACTIONS (2)
  - Off label use [None]
  - Product use issue [None]
